FAERS Safety Report 6810013-8 (Version None)
Quarter: 2010Q2

REPORT INFORMATION
  Report Type: 
  Country: None (occurrence: None)
  Receive Date: 20100630
  Receipt Date: 20100623
  Transmission Date: 20101027
  Serious: Yes (Hospitalization)
  Sender: FDA-Public Use
  Company Number: A0867730A

PATIENT
  Sex: Female

DRUGS (2)
  1. VENTOLIN [Suspect]
     Route: 055
     Dates: start: 20080226
  2. ADVAIR DISKUS 100/50 [Suspect]
     Route: 055
     Dates: start: 20080226

REACTIONS (1)
  - NECK INJURY [None]
